FAERS Safety Report 16678363 (Version 2)
Quarter: 2019Q4

REPORT INFORMATION
  Report Type: Spontaneous
  Country: US (occurrence: US)
  Receive Date: 20190807
  Receipt Date: 20191007
  Transmission Date: 20200122
  Serious: Yes (Other)
  Sender: FDA-Public Use
  Company Number: US-PFIZER INC-2019334005

PATIENT
  Age: 75 Year
  Sex: Female
  Weight: 86.17 kg

DRUGS (1)
  1. AROMASIN [Suspect]
     Active Substance: EXEMESTANE
     Indication: BREAST CANCER IN SITU
     Dosage: 25 MG, DAILY
     Dates: start: 20190330, end: 20190404

REACTIONS (2)
  - Headache [Unknown]
  - Hypertension [Recovered/Resolved]

NARRATIVE: CASE EVENT DATE: 20190330
